FAERS Safety Report 9246233 (Version 4)
Quarter: 2013Q2

REPORT INFORMATION
  Report Type: Spontaneous
  Country: FR (occurrence: FR)
  Receive Date: 20130422
  Receipt Date: 20130515
  Transmission Date: 20140414
  Serious: Yes (Hospitalization, Other)
  Sender: FDA-Public Use
  Company Number: FR-ASTRAZENECA-2013SE26355

PATIENT
  Age: 71 Year
  Sex: Male

DRUGS (8)
  1. INEXIUM [Suspect]
     Route: 048
     Dates: end: 201302
  2. ALLOPURINOL [Suspect]
     Indication: GOUT
     Route: 048
     Dates: start: 201302, end: 201302
  3. COLCHICINE [Suspect]
     Indication: GOUT
     Route: 048
     Dates: end: 201302
  4. COLCHICINE [Suspect]
     Indication: GOUT
     Route: 048
     Dates: start: 201302, end: 201302
  5. CRESTOR [Concomitant]
     Route: 048
  6. TEMERIT [Concomitant]
  7. SEROPLEX [Concomitant]
  8. LOVENOX [Concomitant]

REACTIONS (5)
  - Fall [Unknown]
  - Orthostatic hypertension [Unknown]
  - Lung disorder [Unknown]
  - Leukopenia [Recovered/Resolved]
  - Neutropenia [Recovered/Resolved]
